FAERS Safety Report 8368245-6 (Version None)
Quarter: 2012Q2

REPORT INFORMATION
  Report Type: 
  Country: None (occurrence: None)
  Receive Date: 20120517
  Receipt Date: 20120509
  Transmission Date: 20120825
  Serious: Yes (Hospitalization, Disabling)
  Sender: FDA-Public Use
  Company Number: US-MERCK-1202USA03900

PATIENT
  Age: 52 Year
  Sex: Female
  Weight: 55 kg

DRUGS (19)
  1. FOSAMAX [Suspect]
     Route: 048
     Dates: start: 20100127, end: 20110801
  2. FOSAMAX [Suspect]
     Route: 048
     Dates: start: 20071127
  3. BONIVA [Suspect]
     Indication: OSTEOPENIA
     Route: 065
     Dates: start: 20100324, end: 20110301
  4. OSTEO-BI-FLEX [Concomitant]
     Route: 065
  5. HORMONES (UNSPECIFIED) [Concomitant]
     Route: 065
     Dates: start: 19760101
  6. WELLBUTRIN XL [Concomitant]
     Route: 065
  7. ALENDRONATE SODIUM [Suspect]
     Indication: OSTEOPOROSIS
     Route: 048
     Dates: start: 20080221
  8. FOSAMAX [Suspect]
     Route: 048
     Dates: start: 20100127, end: 20110801
  9. CHONDROITIN SULFATE SODIUM AND GLUCOSAMINE SULFATE [Concomitant]
     Route: 065
  10. FOSAMAX [Suspect]
     Indication: OSTEOPOROSIS
     Route: 048
     Dates: start: 20041108, end: 20071101
  11. CALCIUM CITRATE AND VITAMIN D (UNSPECIFIED) [Concomitant]
     Route: 065
     Dates: start: 20040101
  12. FOSAMAX [Suspect]
     Route: 048
     Dates: start: 20071127
  13. BONIVA [Suspect]
     Indication: OSTEOPOROSIS
     Route: 065
     Dates: start: 20100324, end: 20110301
  14. PREMPRO [Concomitant]
     Route: 065
     Dates: start: 20040103
  15. VITAMINS (UNSPECIFIED) [Concomitant]
     Route: 065
  16. ARBONNE BIO NUTRIA JOINT FORMULA [Concomitant]
     Route: 065
  17. FOSAMAX [Suspect]
     Indication: OSTEOPENIA
     Route: 048
     Dates: start: 20041108, end: 20071101
  18. ALENDRONATE SODIUM [Suspect]
     Indication: OSTEOPENIA
     Route: 048
     Dates: start: 20080221
  19. AMITIZA [Concomitant]
     Route: 048

REACTIONS (27)
  - FEMUR FRACTURE [None]
  - LYMPHADENOPATHY [None]
  - DEPRESSION [None]
  - ANAEMIA [None]
  - ANXIETY [None]
  - VAGINAL HAEMORRHAGE [None]
  - LACERATION [None]
  - FOOT FRACTURE [None]
  - ATRIAL SEPTAL DEFECT [None]
  - INSOMNIA [None]
  - DILATATION ATRIAL [None]
  - FATIGUE [None]
  - PROCEDURAL HAEMORRHAGE [None]
  - LIGAMENT SPRAIN [None]
  - LOSS OF CONSCIOUSNESS [None]
  - DYSPNOEA EXERTIONAL [None]
  - EAR PAIN [None]
  - MENOPAUSE [None]
  - PYREXIA [None]
  - DRUG INEFFECTIVE [None]
  - BRONCHOSPASM [None]
  - VULVOVAGINAL MYCOTIC INFECTION [None]
  - ACTINIC KERATOSIS [None]
  - NASAL SEPTUM DISORDER [None]
  - LOW TURNOVER OSTEOPATHY [None]
  - UTERINE DISORDER [None]
  - NEURALGIA [None]
